FAERS Safety Report 20835720 (Version 3)
Quarter: 2022Q3

REPORT INFORMATION
  Report Type: Spontaneous
  Country: US (occurrence: US)
  Receive Date: 20220516
  Receipt Date: 20220902
  Transmission Date: 20221027
  Serious: No
  Sender: FDA-Public Use
  Company Number: US-PFIZER INC-202200470192

PATIENT
  Age: 47 Year
  Sex: Female

DRUGS (1)
  1. XELJANZ XR [Suspect]
     Active Substance: TOFACITINIB CITRATE
     Dosage: 11 MG, 1X/DAY

REACTIONS (6)
  - Product dose omission issue [Unknown]
  - Myalgia [Unknown]
  - Arthralgia [Unknown]
  - Pain [Unknown]
  - Anxiety [Unknown]
  - Liver disorder [Unknown]
